FAERS Safety Report 5329048-X (Version None)
Quarter: 2007Q2

REPORT INFORMATION
  Report Type: 
  Country: None (occurrence: None)
  Receive Date: 20070518
  Receipt Date: 20070503
  Transmission Date: 20071010
  Serious: Yes (Hospitalization, Other)
  Sender: FDA-Public Use
  Company Number: US-PFIZER INC-2006119016

PATIENT
  Sex: Male
  Weight: 111.1 kg

DRUGS (1)
  1. BEXTRA [Suspect]
     Indication: ARTHRALGIA
     Route: 048
     Dates: start: 20030701, end: 20040313

REACTIONS (3)
  - DEPRESSION [None]
  - MYOCARDIAL INFARCTION [None]
  - PANIC ATTACK [None]
